FAERS Safety Report 4956363-1 (Version None)
Quarter: 2006Q1

REPORT INFORMATION
  Report Type: 
  Country: None (occurrence: None)
  Receive Date: 20060329
  Receipt Date: 20050615
  Transmission Date: 20060701
  Serious: Yes (Other)
  Sender: FDA-Public Use
  Company Number: PHEH2005US06818

PATIENT
  Age: 62 Year
  Sex: Female
  Weight: 46.258 kg

DRUGS (6)
  1. CYTOXAN [Concomitant]
  2. ADRIAMYCIN PFS [Concomitant]
  3. PAMIDRONATE DISODIUM [Concomitant]
     Dosage: 90 MG
     Dates: start: 20050720, end: 20050720
  4. ZOMETA [Suspect]
     Indication: METASTASES TO BONE
     Dosage: 4 MG, EVERY 4 WKS
     Dates: start: 20020104, end: 20050504
  5. TAMOXIFEN CITRATE [Concomitant]
  6. FEMARA [Concomitant]

REACTIONS (5)
  - BONE DENSITY INCREASED [None]
  - HYPOAESTHESIA [None]
  - OSTEONECROSIS [None]
  - PAIN IN JAW [None]
  - SWELLING [None]
